FAERS Safety Report 14923724 (Version 2)
Quarter: 2018Q3

REPORT INFORMATION
  Report Type: Spontaneous
  Country: US (occurrence: US)
  Receive Date: 20180522
  Receipt Date: 20180720
  Transmission Date: 20181010
  Serious: Yes (Hospitalization, Other)
  Sender: FDA-Public Use
  Company Number: US-PFIZER INC-2018206778

PATIENT
  Age: 78 Year
  Sex: Female
  Weight: 62.13 kg

DRUGS (2)
  1. IBRANCE [Suspect]
     Active Substance: PALBOCICLIB
     Indication: BREAST CANCER METASTATIC
     Dosage: 125 MG, CYCLIC (D1?21 Q28 DAYS)
     Route: 048
     Dates: start: 20180426
  2. IBRANCE [Suspect]
     Active Substance: PALBOCICLIB
     Dosage: 125 MG, CYCLIC (D1?21 Q28 DAYS)
     Route: 048
     Dates: start: 20180426

REACTIONS (6)
  - Pneumonia [Unknown]
  - Decreased appetite [Unknown]
  - Abdominal pain [Unknown]
  - Dysgeusia [Unknown]
  - Nephrolithiasis [Unknown]
  - Alopecia [Unknown]
